FAERS Safety Report 5023702-5 (Version None)
Quarter: 2006Q2

REPORT INFORMATION
  Report Type: 
  Country: None (occurrence: None)
  Receive Date: 20060428
  Receipt Date: 20050608
  Transmission Date: 20061013
  Serious: Yes (Hospitalization)
  Sender: FDA-Public Use
  Company Number: US-2005-008492

PATIENT
  Sex: 0

DRUGS (4)
  1. LEUKINE [Suspect]
     Indication: RENAL CELL CARCINOMA STAGE UNSPECIFIED
     Dosage: 100 MCG DAYS 1-5, SUBCUTANEOUS
     Route: 058
     Dates: start: 20050314
  2. PROLEUKIN [Concomitant]
  3. TAGAMET [Concomitant]
  4. ACETAMINOPHEN [Concomitant]

REACTIONS (3)
  - BACK PAIN [None]
  - CHEST PAIN [None]
  - ELECTROCARDIOGRAM ABNORMAL [None]
